FAERS Safety Report 4775847-2 (Version None)
Quarter: 2005Q3

REPORT INFORMATION
  Report Type: 
  Country: None (occurrence: None)
  Receive Date: 20050922
  Receipt Date: 20050603
  Transmission Date: 20060218
  Serious: Yes (Hospitalization, Disabling)
  Sender: FDA-Public Use
  Company Number: US-MERCK-0506USA00851

PATIENT
  Age: 61 Year
  Sex: Male
  Weight: 81 kg

DRUGS (4)
  1. VIOXX [Suspect]
     Indication: ARTHRITIS
     Route: 048
     Dates: start: 20030604, end: 20040930
  2. VIAGRA [Concomitant]
     Route: 065
  3. FLOMAX (MORNIFLUMATE) [Concomitant]
     Route: 065
  4. ZITHROMAX [Concomitant]
     Route: 065

REACTIONS (9)
  - ARTHROPATHY [None]
  - CARDIAC DISORDER [None]
  - CORONARY ARTERY OCCLUSION [None]
  - HYPERHIDROSIS [None]
  - HYPERLIPIDAEMIA [None]
  - MYOCARDIAL ISCHAEMIA [None]
  - SINUS BRADYCARDIA [None]
  - SYSTOLIC HYPERTENSION [None]
  - VENTRICULAR HYPERTROPHY [None]
